FAERS Safety Report 4707770-3 (Version None)
Quarter: 2005Q2

REPORT INFORMATION
  Report Type: 
  Country: None (occurrence: None)
  Receive Date: 20050629
  Receipt Date: 20050415
  Transmission Date: 20051028
  Serious: No
  Sender: FDA-Public Use
  Company Number: 05P-163-0297650-00

PATIENT
  Age: 72 Year
  Sex: Male

DRUGS (9)
  1. HUMIRA [Suspect]
     Indication: RHEUMATOID ARTHRITIS
     Dosage: 40 MG, 1 IN 2 WK, SUBCUTANEOUS
     Route: 058
     Dates: start: 20040901
  2. ATENOLOL [Concomitant]
  3. ETODOLAC [Concomitant]
  4. GAVISCON [Concomitant]
  5. ASPIRIN [Concomitant]
  6. SIMVASTATIN [Concomitant]
  7. NIFEDIPINE [Concomitant]
  8. TYRIDOXINE [Concomitant]
  9. HYDROCODONE BITARTRATE [Concomitant]

REACTIONS (9)
  - ABDOMINAL PAIN UPPER [None]
  - ARTHRALGIA [None]
  - ASTHENIA [None]
  - COLD SWEAT [None]
  - DIARRHOEA [None]
  - FLATULENCE [None]
  - HEART RATE DECREASED [None]
  - PARAESTHESIA [None]
  - VISION BLURRED [None]
